FAERS Safety Report 7749587-1 (Version None)
Quarter: 2011Q3

REPORT INFORMATION
  Report Type: 
  Country: None (occurrence: None)
  Receive Date: 20110908
  Receipt Date: 20110831
  Transmission Date: 20111222
  Serious: Yes (Hospitalization, Other)
  Sender: FDA-Public Use
  Company Number: 2011SP035138

PATIENT
  Age: 80 Year
  Sex: Female

DRUGS (1)
  1. ZEGERID [Suspect]
     Indication: GASTROOESOPHAGEAL REFLUX DISEASE
     Dosage: ; PO
     Route: 048
     Dates: start: 20110601

REACTIONS (7)
  - RETCHING [None]
  - MALAISE [None]
  - DEHYDRATION [None]
  - ABDOMINAL DISCOMFORT [None]
  - NAUSEA [None]
  - APHAGIA [None]
  - PRODUCT QUALITY ISSUE [None]
